FAERS Safety Report 5382610-0 (Version None)
Quarter: 2007Q3

REPORT INFORMATION
  Report Type: 
  Country: None (occurrence: None)
  Receive Date: 20070710
  Receipt Date: 20070629
  Transmission Date: 20080115
  Serious: Yes (Hospitalization)
  Sender: FDA-Public Use
  Company Number: PHBS2007JP11155

PATIENT
  Sex: Male

DRUGS (2)
  1. NEORAL [Suspect]
     Indication: APLASTIC ANAEMIA
     Dosage: 400 MG/DAY
     Route: 048
     Dates: start: 20070514
  2. STEROIDS NOS [Concomitant]
     Indication: APLASTIC ANAEMIA
     Route: 065

REACTIONS (6)
  - ANGER [None]
  - CREATININE RENAL CLEARANCE DECREASED [None]
  - HYPONATRAEMIA [None]
  - LOGORRHOEA [None]
  - MANIA [None]
  - RENAL IMPAIRMENT [None]
